FAERS Safety Report 9690330 (Version 1)
Quarter: 2013Q4

REPORT INFORMATION
  Report Type: Spontaneous
  Country: GB (occurrence: None)
  Receive Date: 20131113
  Receipt Date: 20131113
  Transmission Date: 20140711
  Serious: Yes (Hospitalization)
  Sender: FDA-Public Use
  Company Number: 2000494

PATIENT
  Age: 77 Year
  Sex: 0

DRUGS (11)
  1. MEROPENEM [Suspect]
     Indication: LOWER RESPIRATORY TRACT INFECTION
     Dosage: 2 G, 3 DAY, IVDRP
     Route: 041
     Dates: start: 20110422, end: 20110429
  2. PIPERACILLIN AND TAZOBACTAM [Suspect]
     Indication: RESPIRATORY FAILURE
     Dosage: 4.5 G, 3 DAY
     Route: 041
     Dates: start: 20110414, end: 20110422
  3. PIPERACILLIN AND TAZOBACTAM [Suspect]
     Indication: PSEUDOMONAS INFECTION
     Dosage: 4.5 G, 3 DAY
     Route: 041
     Dates: start: 20110414, end: 20110422
  4. LEVOFLOXACIN [Suspect]
     Indication: PNEUMONIA ASPIRATION
     Route: 042
     Dates: start: 20110414, end: 20110414
  5. AMOXICILLIN [Suspect]
     Indication: PRODUCT USED FOR UNKNOWN INDICATION
     Dosage: 500 MG, 3 DAY, ORAL
     Route: 048
     Dates: start: 20100329, end: 20100405
  6. AMOXICILLIN W/ CLAVULANATE POTASSIUM [Suspect]
     Indication: PNEUMONIA ASPIRATION
     Route: 042
     Dates: start: 20110413, end: 20110413
  7. CLARITHROMYCIN [Suspect]
     Indication: PNEUMONIA ASPIRATION
     Route: 042
     Dates: start: 20110414, end: 20110414
  8. CLARITHROMYCIN [Suspect]
     Indication: LOWER RESPIRATORY TRACT INFECTION
     Route: 042
     Dates: start: 20110414, end: 20110414
  9. CIPROFLOXACIN [Suspect]
     Indication: PSEUDOMONAS INFECTION
     Dosage: 500 MG, 2 DAY, ORAL
     Route: 048
     Dates: start: 20110428, end: 20110430
  10. TEICOPLANIN [Suspect]
     Indication: STAPHYLOCOCCAL INFECTION
     Dosage: 1.2 G STAT AND 800 MG ONCE DAILY, STAT AND ONE DOSE GIVEN, THEN STOPPED
     Dates: start: 20110422, end: 20110422
  11. PIPERACILLIN AND TAZOBACTAM [Suspect]
     Indication: PNEUMONIA ASPIRATION

REACTIONS (9)
  - Pseudomonas infection [None]
  - Abnormal faeces [None]
  - Faeces discoloured [None]
  - Pyrexia [None]
  - C-reactive protein increased [None]
  - White blood cell count increased [None]
  - Lung consolidation [None]
  - Diarrhoea [None]
  - Clostridium difficile infection [None]
